FAERS Safety Report 13660754 (Version 1)
Quarter: 2017Q2

REPORT INFORMATION
  Report Type: Spontaneous
  Country: US (occurrence: US)
  Receive Date: 20170616
  Receipt Date: 20170616
  Transmission Date: 20170830
  Serious: No
  Sender: FDA-Public Use
  Company Number: US-TARO-2016TAR00587

PATIENT
  Sex: Male

DRUGS (1)
  1. NORTRIPTYLINE HCL CAPSULES 25 MG [Suspect]
     Active Substance: NORTRIPTYLINE HYDROCHLORIDE

REACTIONS (1)
  - Gluten sensitivity [Not Recovered/Not Resolved]
